FAERS Safety Report 4858273-7 (Version None)
Quarter: 2005Q4

REPORT INFORMATION
  Report Type: 
  Country: None (occurrence: None)
  Receive Date: 20051219
  Receipt Date: 20050325
  Transmission Date: 20060501
  Serious: No
  Sender: FDA-Public Use
  Company Number: US-GLAXOSMITHKLINE-A0551360A

PATIENT
  Age: 62 Year
  Sex: Male

DRUGS (4)
  1. EQUATE NTS 21MG [Suspect]
     Dates: start: 20050315
  2. DILANTIN [Concomitant]
  3. ALBUTEROL [Concomitant]
  4. OXYGEN [Concomitant]

REACTIONS (4)
  - DEPRESSION [None]
  - IRRITABILITY [None]
  - MOOD ALTERED [None]
  - TREMOR [None]
